FAERS Safety Report 10451156 (Version 3)
Quarter: 2015Q3

REPORT INFORMATION
  Report Type: Report from Study
  Country: DE (occurrence: DE)
  Receive Date: 20140912
  Receipt Date: 20150805
  Transmission Date: 20151125
  Serious: Yes (Hospitalization, Other)
  Sender: FDA-Public Use
  Company Number: PHHO2014DE011598

PATIENT
  Age: 80 Year
  Sex: Male
  Weight: 66 kg

DRUGS (15)
  1. ENALAPRIL [Concomitant]
     Active Substance: ENALAPRIL
     Indication: HYPERTENSION
     Dosage: 10 MG,
     Route: 048
     Dates: start: 20110910
  2. SPIRIVA [Concomitant]
     Active Substance: TIOTROPIUM BROMIDE MONOHYDRATE
     Indication: CHRONIC OBSTRUCTIVE PULMONARY DISEASE
     Dosage: 36 UG,
     Route: 055
     Dates: start: 201402
  3. PLACEBO [Suspect]
     Active Substance: UNSPECIFIED INGREDIENT
     Indication: CARDIAC FAILURE ACUTE
     Dosage: CODE NOT BROKEN
     Route: 042
     Dates: start: 20140821, end: 20140823
  4. BLINDED RLX030 [Suspect]
     Active Substance: SERELAXIN
     Indication: CARDIAC FAILURE ACUTE
     Dosage: CODE NOT BROKEN
     Route: 042
     Dates: start: 20140821, end: 20140823
  5. HYDROCHLOROTHIAZIDE. [Concomitant]
     Active Substance: HYDROCHLOROTHIAZIDE
     Indication: POLYURIA
     Dosage: 10 MG,
     Route: 048
  6. FALITHROM [Concomitant]
     Active Substance: PHENPROCOUMON
     Indication: ANTICOAGULANT THERAPY
     Dosage: UNK
     Route: 065
     Dates: start: 201402
  7. TOREM [Concomitant]
     Active Substance: TORSEMIDE
     Indication: POLYURIA
     Dosage: 12.5 MG,
     Route: 048
  8. ACETYLSALICYLIC ACID [Suspect]
     Active Substance: ASPIRIN
     Indication: ANTIPLATELET THERAPY
     Dosage: 100 MG,
     Route: 048
     Dates: start: 20140829
  9. CLOPIDOGREL [Suspect]
     Active Substance: CLOPIDOGREL BISULFATE
     Indication: ANTIPLATELET THERAPY
     Dosage: 75 MG,
     Route: 048
     Dates: start: 20140828
  10. METOPROLOL [Concomitant]
     Active Substance: METOPROLOL
     Indication: PROPHYLAXIS
     Dosage: 47.5 MG, BID
     Route: 065
     Dates: start: 20140822
  11. TORSEMIDE. [Concomitant]
     Active Substance: TORSEMIDE
     Indication: POLYURIA
     Dosage: 20 MG,
     Route: 048
     Dates: start: 20140820
  12. HEPARIN [Suspect]
     Active Substance: HEPARIN SODIUM
     Indication: ANTICOAGULANT THERAPY
     Dosage: 7500 IU (IE), ONCE/SINGLE
     Route: 058
     Dates: start: 20140906
  13. BISOPROLOL [Concomitant]
     Active Substance: BISOPROLOL
     Indication: PROPHYLAXIS
     Dosage: 1.25 MG,
     Route: 048
  14. DIGITOXIN [Concomitant]
     Active Substance: DIGITOXIN
     Indication: PROPHYLAXIS
     Dosage: 0.07 MG,
     Route: 048
     Dates: start: 20140822
  15. BLINDED NO TREATMENT RECEIVED [Suspect]
     Active Substance: UNSPECIFIED INGREDIENT
     Indication: CARDIAC FAILURE ACUTE
     Dosage: CODE NOT BROKEN
     Route: 042
     Dates: start: 20140821, end: 20140823

REACTIONS (3)
  - Haematoma [Recovering/Resolving]
  - Urinary tract infection [Recovered/Resolved]
  - Coronary artery disease [Recovering/Resolving]

NARRATIVE: CASE EVENT DATE: 20140824
